FAERS Safety Report 25466992 (Version 1)
Quarter: 2025Q2

REPORT INFORMATION
  Report Type: Spontaneous
  Country: US (occurrence: US)
  Receive Date: 20250623
  Receipt Date: 20250623
  Transmission Date: 20250717
  Serious: No
  Sender: Vantive US Healthcare
  Company Number: US-VANTIVE-2025VAN002785

PATIENT
  Age: 44 Year
  Sex: Male

DRUGS (3)
  1. DIANEAL [Suspect]
     Active Substance: CALCIUM CHLORIDE\DEXTROSE\MAGNESIUM CHLORIDE\SODIUM CHLORIDE\SODIUM LACTATE
     Indication: Peritoneal dialysis
     Route: 033
     Dates: start: 20250127, end: 20250519
  2. DIANEAL [Suspect]
     Active Substance: CALCIUM CHLORIDE\DEXTROSE\MAGNESIUM CHLORIDE\SODIUM CHLORIDE\SODIUM LACTATE
     Route: 033
     Dates: start: 20250603
  3. EXTRANEAL [Suspect]
     Active Substance: CALCIUM CHLORIDE\ICODEXTRIN\MAGNESIUM CHLORIDE\SODIUM CHLORIDE\SODIUM LACTATE
     Indication: Peritoneal dialysis
     Route: 033
     Dates: start: 20250519, end: 20250603

REACTIONS (5)
  - Drug hypersensitivity [Recovering/Resolving]
  - Rash pruritic [Recovering/Resolving]
  - Rash erythematous [Recovering/Resolving]
  - Skin exfoliation [Recovering/Resolving]
  - Hyperphosphataemia [Recovering/Resolving]

NARRATIVE: CASE EVENT DATE: 20250519
